FAERS Safety Report 8600301-7 (Version None)
Quarter: 2012Q3

REPORT INFORMATION
  Report Type: 
  Country: None (occurrence: None)
  Receive Date: 20120817
  Receipt Date: 20120813
  Transmission Date: 20120928
  Serious: No
  Sender: FDA-Public Use
  Company Number: US-BIOGENIDEC-2012BI031178

PATIENT
  Age: 54 Year
  Sex: Female

DRUGS (1)
  1. AVONEX [Suspect]
     Indication: MULTIPLE SCLEROSIS
     Route: 030
     Dates: start: 19970105

REACTIONS (4)
  - COGNITIVE DISORDER [None]
  - MUSCLE CONTRACTIONS INVOLUNTARY [None]
  - MENTAL IMPAIRMENT [None]
  - CENTRAL NERVOUS SYSTEM LESION [None]
